FAERS Safety Report 4940038-9 (Version None)
Quarter: 2006Q1

REPORT INFORMATION
  Report Type: 
  Country: None (occurrence: None)
  Receive Date: 20060310
  Receipt Date: 20060224
  Transmission Date: 20060701
  Serious: Yes (Other)
  Sender: FDA-Public Use
  Company Number: AU-BRISTOL-MYERS SQUIBB COMPANY-13294467

PATIENT
  Sex: Female

DRUGS (1)
  1. FUNGILIN LOZENGES [Suspect]
     Dosage: 2 LOZENGES ON 22-FEB-2006 AND 3 LOZENGES ON 23-FEB-2006.
     Route: 048
     Dates: start: 20060222, end: 20060223

REACTIONS (6)
  - CHEILITIS [None]
  - PARAESTHESIA ORAL [None]
  - SALIVA ALTERED [None]
  - SWELLING FACE [None]
  - SWOLLEN TONGUE [None]
  - TONGUE DISORDER [None]
